FAERS Safety Report 4818492-2 (Version None)
Quarter: 2005Q4

REPORT INFORMATION
  Report Type: 
  Country: None (occurrence: None)
  Receive Date: 20051031
  Receipt Date: 20051018
  Transmission Date: 20060501
  Serious: Yes (Other)
  Sender: FDA-Public Use
  Company Number: 2005145779

PATIENT
  Sex: Male
  Weight: 104.3273 kg

DRUGS (7)
  1. LIPITOR [Suspect]
     Indication: HYPERCHOLESTEROLAEMIA
     Dosage: 10 MG (10 MG, 1 IN 1 D)
     Dates: end: 20051019
  2. COZAAR [Concomitant]
  3. PLENDIL [Concomitant]
  4. ALLOPURINOL [Concomitant]
  5. ALL OTHER THERAPEUTIC PRODUCTS [Concomitant]
  6. HYDROCHLOROTHIAZIDE [Concomitant]
  7. METFORMIN [Concomitant]

REACTIONS (3)
  - ASCITES [None]
  - HEPATOCELLULAR DAMAGE [None]
  - TREATMENT NONCOMPLIANCE [None]
